FAERS Safety Report 13814912 (Version 1)
Quarter: 2017Q3

REPORT INFORMATION
  Report Type: Report from Study
  Country: FR (occurrence: FR)
  Receive Date: 20170731
  Receipt Date: 20170731
  Transmission Date: 20171127
  Serious: Yes (Death)
  Sender: FDA-Public Use
  Company Number: FR-GUERBET-FR-20170407

PATIENT
  Age: 79 Year
  Sex: Male

DRUGS (2)
  1. LIPIODOL [Suspect]
     Active Substance: ETHIODIZED OIL
     Indication: TRANSCATHETER ARTERIAL CHEMOEMBOLISATION
     Route: 013
  2. DOXORUBICIN HYDROCHLORIDE. [Concomitant]
     Active Substance: DOXORUBICIN HYDROCHLORIDE
     Indication: TRANSCATHETER ARTERIAL CHEMOEMBOLISATION
     Route: 013

REACTIONS (1)
  - Lung infection [Fatal]
